FAERS Safety Report 7557523-6 (Version None)
Quarter: 2011Q2

REPORT INFORMATION
  Report Type: 
  Country: None (occurrence: None)
  Receive Date: 20110610
  Receipt Date: 20110527
  Transmission Date: 20111010
  Serious: Yes (Other)
  Sender: FDA-Public Use
  Company Number: 2011MA006527

PATIENT
  Sex: Female

DRUGS (1)
  1. METOCLOPRAMIDE [Suspect]
     Dates: start: 20040101, end: 20110201

REACTIONS (10)
  - FAMILY STRESS [None]
  - PAIN [None]
  - NERVOUS SYSTEM DISORDER [None]
  - MENTAL DISORDER [None]
  - EMOTIONAL DISTRESS [None]
  - DISABILITY [None]
  - EXTRAPYRAMIDAL DISORDER [None]
  - QUALITY OF LIFE DECREASED [None]
  - ACTIVITIES OF DAILY LIVING IMPAIRED [None]
  - MULTIPLE INJURIES [None]
